FAERS Safety Report 12337304 (Version 2)
Quarter: 2017Q3

REPORT INFORMATION
  Report Type: Spontaneous
  Country: US (occurrence: US)
  Receive Date: 20160505
  Receipt Date: 20170714
  Transmission Date: 20171127
  Serious: No
  Sender: FDA-Public Use
  Company Number: US-PFIZER INC-2016210818

PATIENT
  Age: 56 Year
  Sex: Female

DRUGS (18)
  1. LITHIUM. [Suspect]
     Active Substance: LITHIUM
  2. ZOLPIDEM [Concomitant]
     Active Substance: ZOLPIDEM\ZOLPIDEM TARTRATE
     Dosage: UNK
  3. ARTIFICIAL TEARS /00445101/ [Concomitant]
  4. PRILOSEC [Concomitant]
     Active Substance: OMEPRAZOLE MAGNESIUM
  5. OLANZAPINE. [Concomitant]
     Active Substance: OLANZAPINE
  6. LAMICTAL [Concomitant]
     Active Substance: LAMOTRIGINE
  7. DEPAKOTE [Suspect]
     Active Substance: DIVALPROEX SODIUM
     Dosage: UNK
  8. VITAMIN D /00107901/ [Concomitant]
     Active Substance: ERGOCALCIFEROL
  9. VITAMINS WITH MINERALS [Concomitant]
     Active Substance: MINERALS\VITAMINS
  10. CALCIUM CITRATE [Concomitant]
     Active Substance: CALCIUM CITRATE
  11. ASPARTAME [Suspect]
     Active Substance: ASPARTAME
     Dosage: UNK
  12. QUETIAPINE. [Suspect]
     Active Substance: QUETIAPINE
  13. HYDROXYZINE PAMOATE. [Concomitant]
     Active Substance: HYDROXYZINE PAMOATE
  14. LEVOTHYROXINE. [Concomitant]
     Active Substance: LEVOTHYROXINE
  15. TIZANIDINE. [Concomitant]
     Active Substance: TIZANIDINE
  16. VITAMIN C [Concomitant]
     Active Substance: ASCORBIC ACID
  17. DILANTIN [Suspect]
     Active Substance: PHENYTOIN
     Dosage: UNK
  18. COGENTIN [Concomitant]
     Active Substance: BENZTROPINE MESYLATE

REACTIONS (2)
  - Swelling [Unknown]
  - Drug hypersensitivity [Unknown]
